FAERS Safety Report 12210887 (Version 1)
Quarter: 2016Q1

REPORT INFORMATION
  Report Type: Spontaneous
  Country: US (occurrence: US)
  Receive Date: 20160325
  Receipt Date: 20160325
  Transmission Date: 20160526
  Serious: Yes (Other)
  Sender: FDA-Public Use
  Company Number: US-ASTRAZENECA-2016SE31590

PATIENT
  Age: 71 Year
  Sex: Male
  Weight: 74.8 kg

DRUGS (4)
  1. SYMBICORT [Suspect]
     Active Substance: BUDESONIDE\FORMOTEROL FUMARATE DIHYDRATE
     Indication: CHRONIC OBSTRUCTIVE PULMONARY DISEASE
     Dosage: 160/4.5 2 PUFFS TWICE DAILY
     Route: 055
     Dates: start: 20160317
  2. COMBIVENT RESPIMAT [Concomitant]
     Active Substance: ALBUTEROL SULFATE\IPRATROPIUM BROMIDE
     Indication: INHALATION THERAPY
     Dosage: FOUR TIMES A DAY
     Route: 055
  3. SYMBICORT [Suspect]
     Active Substance: BUDESONIDE\FORMOTEROL FUMARATE DIHYDRATE
     Indication: CHRONIC OBSTRUCTIVE PULMONARY DISEASE
     Dosage: 80/4.5 2 PUFFS TWICE DAILY
     Route: 055
  4. COMBIVENT RESPIMAT [Concomitant]
     Active Substance: ALBUTEROL SULFATE\IPRATROPIUM BROMIDE
     Indication: CHRONIC OBSTRUCTIVE PULMONARY DISEASE
     Dosage: FOUR TIMES A DAY
     Route: 055

REACTIONS (7)
  - Oropharyngeal pain [Unknown]
  - Aortic rupture [Unknown]
  - Intentional product misuse [Unknown]
  - Sneezing [Unknown]
  - Sciatica [Unknown]
  - Joint swelling [Unknown]
  - Middle insomnia [Unknown]

NARRATIVE: CASE EVENT DATE: 2014
